FAERS Safety Report 15776365 (Version 1)
Quarter: 2018Q4

REPORT INFORMATION
  Report Type: Spontaneous
  Country: US (occurrence: US)
  Receive Date: 20181231
  Receipt Date: 20181231
  Transmission Date: 20190205
  Serious: No
  Sender: FDA-Public Use
  Company Number: US-TEVA-2018-US-984681

PATIENT
  Sex: Female

DRUGS (1)
  1. AMLODIPINE W/VALSARTAN [Suspect]
     Active Substance: AMLODIPINE\VALSARTAN
     Route: 065

REACTIONS (7)
  - Somnolence [Unknown]
  - Recalled product administered [Unknown]
  - Fatigue [Unknown]
  - Nasopharyngitis [Unknown]
  - Overweight [Unknown]
  - Malaise [Unknown]
  - Mass [Unknown]
